FAERS Safety Report 5783106-4 (Version None)
Quarter: 2008Q2

REPORT INFORMATION
  Report Type: 
  Country: None (occurrence: None)
  Receive Date: 20080619
  Receipt Date: 20080619
  Transmission Date: 20081010
  Serious: Yes (Other)
  Sender: FDA-Public Use
  Company Number: None

PATIENT
  Sex: Female
  Weight: 79.3795 kg

DRUGS (7)
  1. PROVIGIL [Suspect]
     Indication: FATIGUE
     Dosage: 200MG ONCE DAILY PO
     Route: 048
     Dates: start: 20080322, end: 20080619
  2. NODOZ CAFFINE PILLS 200MG NOVARTIS [Suspect]
     Indication: FATIGUE
     Dosage: 200MG DAILY/RANDOMLY PO
     Route: 048
     Dates: start: 20080101, end: 20080619
  3. ABILIFY [Concomitant]
  4. LAMICTAL [Concomitant]
  5. VYVANSE [Concomitant]
  6. TOPAMAX [Concomitant]
  7. DEPO-PROVERA CONTRACEPTIVE SHOT [Concomitant]

REACTIONS (9)
  - DRUG INTERACTION [None]
  - EPISTAXIS [None]
  - EYE PAIN [None]
  - FOOD INTERACTION [None]
  - HEADACHE [None]
  - HYPOAESTHESIA [None]
  - INCORRECT DOSE ADMINISTERED [None]
  - PARAESTHESIA [None]
  - SINUS DISORDER [None]
